FAERS Safety Report 7200350-X (Version None)
Quarter: 2010Q4

REPORT INFORMATION
  Report Type: 
  Country: None (occurrence: None)
  Receive Date: 20101228
  Receipt Date: 20101215
  Transmission Date: 20110411
  Serious: Yes (Other)
  Sender: FDA-Public Use
  Company Number: IT-CELGENEUS-083-21880-10122365

PATIENT

DRUGS (9)
  1. REVLIMID [Suspect]
     Route: 048
  2. REVLIMID [Suspect]
     Route: 048
  3. REVLIMID [Suspect]
     Route: 048
  4. REVLIMID [Suspect]
     Route: 048
  5. FLUDARABINE PHOSPHATE [Suspect]
     Route: 051
  6. CYCLOPHOSPHAMIDE [Suspect]
     Route: 065
  7. G-CSF [Concomitant]
     Indication: PROPHYLAXIS
     Route: 065
  8. ENOXAPARIN SODIUM [Concomitant]
     Indication: THROMBOSIS PROPHYLAXIS
     Dosage: 4000 UNITS
     Route: 058
  9. ALLOPURINOL [Concomitant]
     Indication: PROPHYLAXIS
     Route: 065

REACTIONS (8)
  - CHRONIC LYMPHOCYTIC LEUKAEMIA TRANSFORMATION [None]
  - CONSTIPATION [None]
  - FATIGUE [None]
  - LIVER DISORDER [None]
  - NEUTROPENIA [None]
  - PNEUMONIA [None]
  - TREATMENT FAILURE [None]
  - TUMOUR FLARE [None]
